FAERS Safety Report 14728236 (Version 1)
Quarter: 2018Q2

REPORT INFORMATION
  Report Type: Report from Study
  Country: US (occurrence: US)
  Receive Date: 20180406
  Receipt Date: 20180406
  Transmission Date: 20180711
  Serious: Yes (Other)
  Sender: FDA-Public Use
  Company Number: US-GILEAD-2018-0330885

PATIENT
  Age: 72 Year
  Sex: Female

DRUGS (1)
  1. RANOLAZINE. [Suspect]
     Active Substance: RANOLAZINE
     Indication: ANGINA PECTORIS
     Dosage: 1000 MG, BID
     Route: 048

REACTIONS (10)
  - Hip fracture [Unknown]
  - Arthritis [Recovering/Resolving]
  - Blood iron decreased [Recovering/Resolving]
  - Hip arthroplasty [Unknown]
  - Fall [Recovered/Resolved]
  - Splenomegaly [Unknown]
  - Hepatitis [Unknown]
  - Walking aid user [Not Recovered/Not Resolved]
  - Angina pectoris [Unknown]
  - Kidney infection [Recovering/Resolving]

NARRATIVE: CASE EVENT DATE: 2017
